FAERS Safety Report 15953769 (Version 1)
Quarter: 2019Q1

REPORT INFORMATION
  Report Type: Spontaneous
  Country: US (occurrence: US)
  Receive Date: 20190212
  Receipt Date: 20190212
  Transmission Date: 20190417
  Serious: Yes (Other)
  Sender: FDA-Public Use
  Company Number: US-PFIZER INC-2019058884

PATIENT
  Age: 26 Year

DRUGS (3)
  1. VINBLASTINE [Suspect]
     Active Substance: VINBLASTINE
     Indication: GERM CELL CANCER
     Dosage: UNK, CYCLIC
  2. BLEOMYCIN SULFATE [Suspect]
     Active Substance: BLEOMYCIN SULFATE
     Indication: GERM CELL CANCER
     Dosage: UNK, CYCLIC
  3. CISPLATIN. [Suspect]
     Active Substance: CISPLATIN
     Indication: GERM CELL CANCER
     Dosage: UNK, CYCLIC

REACTIONS (1)
  - Essential thrombocythaemia [Unknown]
